FAERS Safety Report 21405658 (Version 1)
Quarter: 2022Q4

REPORT INFORMATION
  Report Type: Spontaneous
  Country: CA (occurrence: None)
  Receive Date: 20221004
  Receipt Date: 20221004
  Transmission Date: 20230112
  Serious: Yes (Other)
  Sender: FDA-Public Use
  Company Number: CA-ROCHE-3189335

PATIENT
  Age: 65 Year
  Sex: Female

DRUGS (11)
  1. RITUXIMAB [Suspect]
     Active Substance: RITUXIMAB
     Indication: Rheumatoid arthritis
     Route: 041
  2. CALCIUM [Concomitant]
     Active Substance: CALCIUM
     Indication: Premedication
  3. FOLIC ACID [Concomitant]
     Active Substance: FOLIC ACID
  4. HYDROXYCHLOROQUINE SULFATE [Concomitant]
     Active Substance: HYDROXYCHLOROQUINE SULFATE
  5. METHOTREXATE [Concomitant]
     Active Substance: METHOTREXATE
     Route: 048
  6. METHYLPREDNISOLONE SODIUM SUCCINATE [Concomitant]
     Active Substance: METHYLPREDNISOLONE SODIUM SUCCINATE
     Route: 042
  7. OLMESARTAN [Concomitant]
     Active Substance: OLMESARTAN
  8. TAMOXIFEN [Concomitant]
     Active Substance: TAMOXIFEN
  9. ACETAMINOPHEN [Concomitant]
     Active Substance: ACETAMINOPHEN
     Indication: Premedication
     Route: 048
  10. BENADRYL [Concomitant]
     Active Substance: DIPHENHYDRAMINE HYDROCHLORIDE
     Indication: Premedication
     Route: 048
  11. BISOPROLOL [Concomitant]
     Active Substance: BISOPROLOL

REACTIONS (4)
  - Blood pressure increased [Recovered/Resolved]
  - Blood pressure systolic increased [Recovered/Resolved]
  - Hypothyroidism [Recovered/Resolved]
  - Infusion related reaction [Recovered/Resolved]
